FAERS Safety Report 6676556-5 (Version None)
Quarter: 2010Q2

REPORT INFORMATION
  Report Type: 
  Country: None (occurrence: None)
  Receive Date: 20100412
  Receipt Date: 20100407
  Transmission Date: 20101027
  Serious: Yes (Other)
  Sender: FDA-Public Use
  Company Number: NL-ASTRAZENECA-2010SE14326

PATIENT

DRUGS (10)
  1. PROPOFOL [Suspect]
     Indication: INDUCTION OF ANAESTHESIA
     Dosage: VIA A TIVA PUMP OVER 60 SEC
  2. PROPOFOL [Suspect]
     Indication: MAINTENANCE OF ANAESTHESIA
     Dosage: VIA A TIVA PUMP OVER 60 SEC
  3. PROPOFOL [Suspect]
     Dosage: CONTINUOUS INFUSION
  4. PROPOFOL [Suspect]
     Dosage: CONTINUOUS INFUSION
  5. FENTANYL-100 [Concomitant]
     Indication: ENDOTRACHEAL INTUBATION
  6. ATRACURIUM BESYLATE [Concomitant]
     Indication: ENDOTRACHEAL INTUBATION
  7. ATRACURIUM BESYLATE [Concomitant]
     Indication: MAINTENANCE OF ANAESTHESIA
  8. ATRACURIUM BESYLATE [Concomitant]
     Dosage: CONTINUOUS INFUSION
  9. ATRACURIUM BESYLATE [Concomitant]
     Dosage: CONTINUOUS INFUSION
  10. REMIFENTANIL [Concomitant]
     Indication: MAINTENANCE OF ANAESTHESIA
     Dosage: CONTINUOUS INFUSION

REACTIONS (2)
  - INAPPROPRIATE SCHEDULE OF DRUG ADMINISTRATION [None]
  - MEAN ARTERIAL PRESSURE DECREASED [None]
